FAERS Safety Report 21604448 (Version 1)
Quarter: 2022Q4

REPORT INFORMATION
  Report Type: Spontaneous
  Country: US (occurrence: US)
  Receive Date: 20221116
  Receipt Date: 20221116
  Transmission Date: 20230112
  Serious: Yes (Other)
  Sender: FDA-Public Use
  Company Number: US-BAYER-2022A156807

PATIENT

DRUGS (1)
  1. AFRIN ORIGINAL NASAL [Suspect]
     Active Substance: OXYMETAZOLINE HYDROCHLORIDE
     Dosage: UNK

REACTIONS (4)
  - Sinus congestion [Unknown]
  - Drug dependence [Unknown]
  - Paranasal sinus discomfort [Unknown]
  - Upper-airway cough syndrome [Unknown]
